FAERS Safety Report 23819081 (Version 1)
Quarter: 2024Q2

REPORT INFORMATION
  Report Type: Spontaneous
  Country: US (occurrence: US)
  Receive Date: 20240506
  Receipt Date: 20240506
  Transmission Date: 20240716
  Serious: No
  Sender: FDA-Public Use
  Company Number: US-BRISTOL-MYERS SQUIBB COMPANY-2024-067636

PATIENT
  Age: 57 Year
  Sex: Female

DRUGS (3)
  1. ABRAXANE [Suspect]
     Active Substance: PACLITAXEL
     Indication: Ovarian cancer
     Dosage: DOSE : 205 MG;     FREQ : EVERY 28 DAYS
     Route: 042
     Dates: start: 20240219
  2. ABRAXANE [Suspect]
     Active Substance: PACLITAXEL
     Dosage: 195 MG DAY 1, DAY 8, AND DAY15 EVERY 28 DAYS
     Route: 042
  3. CARBOPLATIN [Concomitant]
     Active Substance: CARBOPLATIN
     Indication: Product used for unknown indication

REACTIONS (2)
  - Uterine disorder [Unknown]
  - Off label use [Unknown]
